FAERS Safety Report 7732155-5 (Version None)
Quarter: 2011Q3

REPORT INFORMATION
  Report Type: 
  Country: None (occurrence: None)
  Receive Date: 20110906
  Receipt Date: 20110831
  Transmission Date: 20111222
  Serious: Yes (Other)
  Sender: FDA-Public Use
  Company Number: US-PFIZER INC-HQWYE768410MAY04

PATIENT
  Sex: Female
  Weight: 79.36 kg

DRUGS (7)
  1. CYCRIN [Suspect]
     Indication: HORMONE REPLACEMENT THERAPY
     Dosage: UNK
     Route: 048
  2. ACTIVELLA [Suspect]
     Indication: HORMONE REPLACEMENT THERAPY
     Dosage: UNK
     Dates: start: 20020901, end: 20030201
  3. PREMPRO [Suspect]
     Dosage: 0.625/2.5
     Route: 048
     Dates: start: 20030201, end: 20030601
  4. MEDROXYPROGESTERONE ACETATE [Suspect]
     Indication: HORMONE REPLACEMENT THERAPY
     Dosage: UNK
     Route: 048
  5. PREMPRO [Suspect]
     Indication: HORMONE REPLACEMENT THERAPY
     Dosage: 0.625/2.5
     Route: 048
     Dates: start: 19971201, end: 20020901
  6. PROVERA [Suspect]
     Indication: HORMONE REPLACEMENT THERAPY
     Dosage: 2.5 TO 10MG
     Route: 048
     Dates: start: 19880101, end: 19971201
  7. PREMARIN [Suspect]
     Indication: HORMONE REPLACEMENT THERAPY
     Dosage: UNK
     Route: 048
     Dates: start: 19890101, end: 19971201

REACTIONS (2)
  - BREAST CANCER FEMALE [None]
  - LYMPHOEDEMA [None]
